FAERS Safety Report 4264820-9 (Version None)
Quarter: 2004Q1

REPORT INFORMATION
  Report Type: 
  Country: None (occurrence: None)
  Receive Date: 20040105
  Receipt Date: 20031219
  Transmission Date: 20041129
  Serious: Yes (Death)
  Sender: FDA-Public Use
  Company Number: 200311378JP

PATIENT
  Age: 78 Year
  Sex: Female
  Weight: 41 kg

DRUGS (10)
  1. LASIX [Suspect]
     Indication: HYPERTENSION
     Dosage: 10 MG/DAY PO
     Dates: start: 19990501, end: 20020123
  2. IMIDAPRIL HYDROCHLORIDE (TANATRIL ^TANABE^ )TABLETS [Suspect]
     Indication: HYPERTENSION
     Dosage: 5 MG/DAY PO
     Dates: start: 20000601, end: 20020102
  3. ALENDRONATE SODIUM [Concomitant]
  4. METOPROLOL TARTRATE (SELOKEN) [Concomitant]
  5. METOPROLOL TARTRATE (LOPRESOR) [Concomitant]
  6. NORVASC [Concomitant]
  7. IRSOGLADINE MALEATE (GASLON) [Concomitant]
  8. ETODOLAC (HYPEN) [Concomitant]
  9. TICLOPIDINE HCL [Concomitant]
  10. MENATETRENONE (GLAKAY) [Concomitant]

REACTIONS (18)
  - ARRHYTHMIA [None]
  - BLOOD ALBUMIN DECREASED [None]
  - BLOOD CHLORIDE DECREASED [None]
  - BRADYCARDIA [None]
  - DEHYDRATION [None]
  - ELECTROCARDIOGRAM ST-T SEGMENT DEPRESSION [None]
  - ELECTROLYTE IMBALANCE [None]
  - FLUID INTAKE REDUCED [None]
  - HEART RATE DECREASED [None]
  - HYPERKALAEMIA [None]
  - HYPOPROTEINAEMIA [None]
  - INFLAMMATION [None]
  - MUCOSAL EROSION [None]
  - SEPSIS [None]
  - SINOATRIAL BLOCK [None]
  - TOXIC EPIDERMAL NECROLYSIS [None]
  - VENTRICULAR EXTRASYSTOLES [None]
  - VENTRICULAR TACHYCARDIA [None]
